FAERS Safety Report 23939060 (Version 3)
Quarter: 2024Q3

REPORT INFORMATION
  Report Type: Spontaneous
  Country: JP (occurrence: JP)
  Receive Date: 20240604
  Receipt Date: 20240828
  Transmission Date: 20241017
  Serious: Yes (Hospitalization)
  Sender: NOVARTIS
  Company Number: JP-002147023-NVSJ2024JP006544

PATIENT
  Age: 50 Year
  Sex: Male

DRUGS (1)
  1. KESIMPTA [Suspect]
     Active Substance: OFATUMUMAB
     Indication: Multiple sclerosis
     Dosage: 20 MG
     Route: 058
     Dates: start: 20220304, end: 20240601

REACTIONS (18)
  - Crohn^s disease [Unknown]
  - Weight decreased [Unknown]
  - Decreased appetite [Unknown]
  - Abdominal pain [Unknown]
  - Faeces soft [Unknown]
  - Large intestinal ulcer [Unknown]
  - Anal ulcer [Unknown]
  - Large intestinal stenosis [Unknown]
  - Anal stenosis [Unknown]
  - General physical health deterioration [Unknown]
  - Diarrhoea [Unknown]
  - Gastrointestinal oedema [Unknown]
  - Physical deconditioning [Unknown]
  - Cryptitis [Unknown]
  - Abscess intestinal [Unknown]
  - Ascites [Unknown]
  - Pyrexia [Recovered/Resolved]
  - Iron deficiency anaemia [Unknown]

NARRATIVE: CASE EVENT DATE: 20220304
